FAERS Safety Report 10013329 (Version 1)
Quarter: 2014Q1

REPORT INFORMATION
  Report Type: Spontaneous
  Country: US (occurrence: US)
  Receive Date: 20140314
  Receipt Date: 20140314
  Transmission Date: 20141002
  Serious: No
  Sender: FDA-Public Use
  Company Number: US-PFIZER INC-2014073432

PATIENT
  Age: 49 Year
  Sex: Male
  Weight: 167.8 kg

DRUGS (9)
  1. LYRICA [Suspect]
     Dosage: 50 MG, 2X/DAY
     Dates: end: 2014
  2. MELOXICAM [Concomitant]
     Dosage: 15 MG, UNK
  3. LEVOTHYROXINE [Concomitant]
     Dosage: 50 MG, UNK
  4. AMLODIPINE [Concomitant]
     Dosage: 10 MG, UNK
  5. HYDROCHLOROTHIAZIDE [Concomitant]
     Dosage: UNK
  6. CYMBALTA [Concomitant]
     Dosage: 30 MG, 2X/DAY
  7. METOPROLOL [Concomitant]
     Dosage: 25 MG, UNK
  8. SIMVASTATIN [Concomitant]
     Dosage: 10 MG, UNK
  9. RANITIDINE [Concomitant]
     Dosage: 300 MG, UNK

REACTIONS (4)
  - Pain [Not Recovered/Not Resolved]
  - Irritability [Not Recovered/Not Resolved]
  - Paraesthesia [Not Recovered/Not Resolved]
  - Movement disorder [Not Recovered/Not Resolved]
